FAERS Safety Report 9473332 (Version 1)
Quarter: 2013Q3

REPORT INFORMATION
  Report Type: Spontaneous
  Country: US (occurrence: US)
  Receive Date: 20130823
  Receipt Date: 20130823
  Transmission Date: 20140515
  Serious: No
  Sender: FDA-Public Use
  Company Number: US-BRISTOL-MYERS SQUIBB COMPANY-18897041

PATIENT
  Age: 67 Year
  Sex: Female
  Weight: 104.76 kg

DRUGS (8)
  1. ACETYLSALICYLIC ACID [Concomitant]
  2. METFORMIN [Concomitant]
  3. FLONASE [Concomitant]
  4. LISINOPRIL [Concomitant]
  5. PLAVIX [Concomitant]
  6. CALCIUM [Concomitant]
  7. CENTRUM SILVER [Concomitant]
  8. SPRYCEL [Suspect]
     Dosage: STRENGTH:50MG
     Route: 048
     Dates: start: 20130506

REACTIONS (1)
  - Abdominal pain [Not Recovered/Not Resolved]
